FAERS Safety Report 4860966-2 (Version None)
Quarter: 2005Q4

REPORT INFORMATION
  Report Type: 
  Country: None (occurrence: None)
  Receive Date: 20051216
  Receipt Date: 20051205
  Transmission Date: 20060501
  Serious: Yes (Other)
  Sender: FDA-Public Use
  Company Number: 2005165557

PATIENT
  Age: 29 Year
  Sex: Female

DRUGS (4)
  1. DEPO-PROVERA [Suspect]
     Indication: ILL-DEFINED DISORDER
     Dosage: SEE IMAGE
     Route: 030
     Dates: start: 20050620, end: 20050620
  2. DEPO-PROVERA [Suspect]
     Indication: ILL-DEFINED DISORDER
     Dosage: SEE IMAGE
     Route: 030
     Dates: start: 20050901, end: 20050901
  3. ALEVE [Concomitant]
  4. PERCOCET [Concomitant]

REACTIONS (3)
  - DISEASE RECURRENCE [None]
  - RHEUMATOID ARTHRITIS [None]
  - VAGINAL HAEMORRHAGE [None]
